FAERS Safety Report 20762637 (Version 1)
Quarter: 2022Q2

REPORT INFORMATION
  Report Type: Spontaneous
  Country: US (occurrence: None)
  Receive Date: 20220427
  Receipt Date: 20220427
  Transmission Date: 20220721
  Serious: Yes (Other)
  Sender: FDA-Public Use
  Company Number: None

PATIENT
  Age: 47 Year
  Sex: Female
  Weight: 63.9 kg

DRUGS (7)
  1. LACOSAMIDE [Suspect]
     Active Substance: LACOSAMIDE
     Indication: Epilepsy
     Dosage: FREQUENCY : TWICE A DAY;?
     Route: 048
     Dates: start: 20220324
  2. ZONISAMIDE [Concomitant]
     Active Substance: ZONISAMIDE
     Dates: start: 20190820
  3. POTASSIUM CHLORIDE [Concomitant]
     Active Substance: POTASSIUM CHLORIDE
     Dates: start: 20200812
  4. CLONAZEPAM [Concomitant]
     Active Substance: CLONAZEPAM
     Dates: start: 20190903
  5. calcium carbonate 600mg [Concomitant]
     Dates: start: 20200812
  6. boswellia serrata extract 400mg QID [Concomitant]
     Dates: start: 20200812
  7. turmeric liquid [Concomitant]
     Dates: start: 20200812

REACTIONS (6)
  - Product substitution issue [None]
  - Fatigue [None]
  - Asthenia [None]
  - Generalised tonic-clonic seizure [None]
  - Aura [None]
  - Hypotension [None]

NARRATIVE: CASE EVENT DATE: 20220403
